FAERS Safety Report 9821589 (Version 3)
Quarter: 2016Q2

REPORT INFORMATION
  Report Type: Spontaneous
  Country: FR (occurrence: FR)
  Receive Date: 20140116
  Receipt Date: 20160503
  Transmission Date: 20160815
  Serious: Yes (Other)
  Sender: FDA-Public Use
  Company Number: FR-ABBVIE-14P-056-1188657-00

PATIENT
  Age: 46 Year
  Sex: Male

DRUGS (2)
  1. DEPAKINE CHRONO [Suspect]
     Active Substance: VALPROATE SODIUM
     Indication: EPILEPSY
     Route: 048
     Dates: start: 1991
  2. DEPAKINE CHRONO [Suspect]
     Active Substance: VALPROATE SODIUM
     Route: 048
     Dates: start: 2004

REACTIONS (10)
  - Urinary incontinence [Unknown]
  - Alopecia [Unknown]
  - Anaemia [Unknown]
  - Muscular weakness [Unknown]
  - Premature ejaculation [Unknown]
  - Osteopenia [Not Recovered/Not Resolved]
  - Erectile dysfunction [Unknown]
  - Deafness [Unknown]
  - Libido disorder [Unknown]
  - Thrombocytopenia [Unknown]
